FAERS Safety Report 12371813 (Version 3)
Quarter: 2016Q4

REPORT INFORMATION
  Report Type: Spontaneous
  Country: US (occurrence: US)
  Receive Date: 20160516
  Receipt Date: 20161027
  Transmission Date: 20170207
  Serious: No
  Sender: FDA-Public Use
  Company Number: US-GLAXOSMITHKLINE-US2016GSK061214

PATIENT
  Sex: Female

DRUGS (2)
  1. SORIATANE [Suspect]
     Active Substance: ACITRETIN
     Indication: PITYRIASIS RUBRA PILARIS
     Dosage: UNK, QD
     Dates: start: 201603
  2. SORIATANE [Suspect]
     Active Substance: ACITRETIN
     Dosage: UNK, QOD

REACTIONS (2)
  - Dry mouth [Unknown]
  - Rash [Unknown]
